FAERS Safety Report 25670705 (Version 1)
Quarter: 2025Q3

REPORT INFORMATION
  Report Type: Spontaneous
  Country: AU (occurrence: AU)
  Receive Date: 20250812
  Receipt Date: 20250812
  Transmission Date: 20251021
  Serious: Yes (Other)
  Sender: MYLAN
  Company Number: AU-MYLANLABS-2025M1067276

PATIENT
  Age: 84 Year
  Sex: Male

DRUGS (8)
  1. VENLAFAXINE HYDROCHLORIDE [Suspect]
     Active Substance: VENLAFAXINE HYDROCHLORIDE
     Indication: Depression
     Dosage: 75 MILLIGRAM, QD (ONCE DAILY)
  2. VENLAFAXINE HYDROCHLORIDE [Suspect]
     Active Substance: VENLAFAXINE HYDROCHLORIDE
     Dosage: 75 MILLIGRAM, QD (ONCE DAILY)
     Route: 048
  3. VENLAFAXINE HYDROCHLORIDE [Suspect]
     Active Substance: VENLAFAXINE HYDROCHLORIDE
     Dosage: 75 MILLIGRAM, QD (ONCE DAILY)
     Route: 048
  4. VENLAFAXINE HYDROCHLORIDE [Suspect]
     Active Substance: VENLAFAXINE HYDROCHLORIDE
     Dosage: 75 MILLIGRAM, QD (ONCE DAILY)
  5. DOXEPIN [Suspect]
     Active Substance: DOXEPIN
     Indication: Product used for unknown indication
  6. DOXEPIN [Suspect]
     Active Substance: DOXEPIN
     Route: 065
  7. DOXEPIN [Suspect]
     Active Substance: DOXEPIN
     Route: 065
  8. DOXEPIN [Suspect]
     Active Substance: DOXEPIN

REACTIONS (1)
  - Pulmonary fibrosis [Unknown]

NARRATIVE: CASE EVENT DATE: 20220101
